FAERS Safety Report 9384125 (Version 1)
Quarter: 2013Q3

REPORT INFORMATION
  Report Type: Report from Study
  Country: CA (occurrence: CA)
  Receive Date: 20130705
  Receipt Date: 20130705
  Transmission Date: 20140515
  Serious: Yes (Hospitalization)
  Sender: FDA-Public Use
  Company Number: CA-JNJFOC-20130620345

PATIENT
  Sex: Female
  Weight: 65 kg

DRUGS (4)
  1. REMICADE [Suspect]
     Indication: CROHN^S DISEASE
     Route: 042
     Dates: start: 20130614
  2. PREDNISONE [Concomitant]
     Route: 065
  3. RATIO- LENOLTEC NO. 3 [Concomitant]
     Route: 065
  4. TYLENOL 3 [Concomitant]
     Route: 065

REACTIONS (1)
  - Nephrolithiasis [Unknown]
